FAERS Safety Report 8170487-X (Version None)
Quarter: 2012Q1

REPORT INFORMATION
  Report Type: 
  Country: None (occurrence: None)
  Receive Date: 20120228
  Receipt Date: 20120214
  Transmission Date: 20120608
  Serious: Yes (Other)
  Sender: FDA-Public Use
  Company Number: IN-CELGENEUS-078-21880-11120864

PATIENT
  Age: 62 Year
  Sex: Male

DRUGS (7)
  1. WARFIN [Concomitant]
     Indication: THROMBOSIS PROPHYLAXIS
     Dosage: 1 MILLIGRAM
     Route: 065
  2. ZOLEDRONIC [Concomitant]
     Route: 041
  3. PREDNISOLONE [Concomitant]
     Indication: MULTIPLE MYELOMA
     Dosage: 100 MILLIGRAM
     Route: 048
  4. ASPIRIN [Concomitant]
     Indication: THROMBOSIS PROPHYLAXIS
     Dosage: 100 MILLIGRAM
     Route: 065
  5. REVLIMID [Suspect]
     Indication: MULTIPLE MYELOMA
     Dosage: 10 MILLIGRAM
     Route: 048
  6. MELPHALAN [Concomitant]
     Indication: MULTIPLE MYELOMA
     Dosage: 11 MILLIGRAM
     Route: 065
  7. ANTIBIOTICS [Concomitant]
     Indication: INFECTION
     Route: 065

REACTIONS (2)
  - CHOLESTASIS [None]
  - HYPERBILIRUBINAEMIA [None]
